FAERS Safety Report 14053679 (Version 1)
Quarter: 2017Q4

REPORT INFORMATION
  Report Type: Spontaneous
  Country: US (occurrence: None)
  Receive Date: 20171006
  Receipt Date: 20171006
  Transmission Date: 20180321
  Serious: Yes (Hospitalization)
  Sender: FDA-Public Use
  Company Number: None

PATIENT
  Age: 70 Year
  Sex: Male
  Weight: 94.6 kg

DRUGS (20)
  1. ACYCLOVIR (ZOVIRAX) [Concomitant]
  2. LEVOTHYROXINE (SYNTHROID, LEVOTHROID) [Concomitant]
  3. CALCIPOTRIENE. [Concomitant]
     Active Substance: CALCIPOTRIENE
  4. POTASSIUM CHLORIDE SA (KLOR-CON) [Concomitant]
  5. FLUTICASONE. [Concomitant]
     Active Substance: FLUTICASONE
  6. LIDOCAINE-PRILOCAINE (EMLA) [Concomitant]
  7. PROCHLORPERAZINE (COMPAZINE) [Concomitant]
  8. CHOLECALCIFEROL [Concomitant]
     Active Substance: CHOLECALCIFEROL
  9. IBUPROFEN. [Concomitant]
     Active Substance: IBUPROFEN
  10. DILTIAZEM (CARDIZEM LA, MARZIM LA) [Concomitant]
  11. MULTIPLE VITAMIN (MULTIVITAMIN) [Concomitant]
  12. CARTIA XT [Concomitant]
     Active Substance: DILTIAZEM HYDROCHLORIDE
  13. CALCIUM CARBONATE (TUMS) [Concomitant]
  14. ZOLOFT [Concomitant]
     Active Substance: SERTRALINE HYDROCHLORIDE
  15. REGORAFENIB 40 MG TABLET [Suspect]
     Active Substance: REGORAFENIB
     Indication: RECTAL CANCER
     Route: 048
     Dates: start: 20170907, end: 20170927
  16. GLUCOSAMINE-CHONDROITIN [Concomitant]
     Active Substance: CHONDROITIN SULFATE (BOVINE)\GLUCOSAMINE SULFATE
  17. KETOCONZOLE (NIZORAL) [Concomitant]
  18. REGORAFONIB 40MG TABLET [Suspect]
     Active Substance: REGORAFENIB
     Indication: RECTAL CANCER
     Route: 048
     Dates: start: 20170809, end: 20170819
  19. LORATADINE (CLARITIN) [Concomitant]
  20. ATIVAN [Concomitant]
     Active Substance: LORAZEPAM

REACTIONS (2)
  - Anaemia [None]
  - Stoma site haemorrhage [None]

NARRATIVE: CASE EVENT DATE: 20171003
